FAERS Safety Report 5894265-7 (Version None)
Quarter: 2008Q3

REPORT INFORMATION
  Report Type: 
  Country: None (occurrence: None)
  Receive Date: 20080923
  Receipt Date: 20080324
  Transmission Date: 20090109
  Serious: No
  Sender: FDA-Public Use
  Company Number: US-ASTRAZENECA-2008UW05830

PATIENT
  Sex: Male

DRUGS (7)
  1. SEROQUEL [Suspect]
     Indication: SLEEP APNOEA SYNDROME
     Route: 048
  2. ZETIA [Concomitant]
  3. METOPROLOL TARTRATE [Concomitant]
     Route: 048
  4. DIVAN [Concomitant]
  5. PLAVIX [Concomitant]
  6. ISOSORBIDE [Concomitant]
  7. AMIODARONE HCL [Concomitant]

REACTIONS (3)
  - ABNORMAL DREAMS [None]
  - FALL [None]
  - FEELING DRUNK [None]
